FAERS Safety Report 9546592 (Version 2)
Quarter: 2013Q4

REPORT INFORMATION
  Report Type: Report from Study
  Country: JP (occurrence: JP)
  Receive Date: 20130924
  Receipt Date: 20131101
  Transmission Date: 20140711
  Serious: Yes (Death)
  Sender: FDA-Public Use
  Company Number: JP-009507513-1309JPN009980

PATIENT
  Age: 82 Year
  Sex: Female

DRUGS (8)
  1. JANUVIA TABLETS 50MG [Suspect]
     Indication: TYPE 2 DIABETES MELLITUS
     Dosage: 50 MG, QD
     Route: 048
     Dates: start: 20120815, end: 20121010
  2. RECALBON [Concomitant]
     Indication: OSTEOPOROSIS
     Dosage: 50 MG, QM
     Route: 048
     Dates: start: 20120620, end: 20121010
  3. AMARYL [Concomitant]
     Indication: TYPE 2 DIABETES MELLITUS
     Dosage: 1 MG, TID
     Route: 048
     Dates: start: 20110701, end: 20121010
  4. AZILVA [Concomitant]
     Indication: HYPERTENSION
     Dosage: 20 MG, BID
     Route: 048
     Dates: start: 20120606, end: 20121010
  5. NIFELANTERN CR [Concomitant]
     Indication: HYPERTENSION
     Dosage: 20 MG, BID
     Route: 048
     Dates: start: 20111026, end: 20121010
  6. RENIVACE [Concomitant]
     Indication: HYPERTENSION
     Dosage: 5 MG, BID
     Route: 048
     Dates: start: 20111008, end: 20121010
  7. LEVEMIR [Concomitant]
     Indication: TYPE 2 DIABETES MELLITUS
     Dosage: 14 UNDER 1000 UNIT, QD
     Route: 051
     Dates: start: 20110701, end: 20121018
  8. HUMALOG [Concomitant]
     Indication: TYPE 2 DIABETES MELLITUS
     Dosage: 5 UNDER 1000 UNIT, QD
     Route: 051
     Dates: start: 20120718, end: 20121018

REACTIONS (1)
  - Pneumonia [Fatal]
